FAERS Safety Report 9796337 (Version 2)
Quarter: 2014Q1

REPORT INFORMATION
  Report Type: Spontaneous
  Country: US (occurrence: US)
  Receive Date: 20140103
  Receipt Date: 20140116
  Transmission Date: 20141002
  Serious: No
  Sender: FDA-Public Use
  Company Number: US-009507513-1401USA000793

PATIENT
  Age: 69 Year
  Sex: Female
  Weight: 86.17 kg

DRUGS (1)
  1. OXYTROL FOR WOMEN [Suspect]
     Indication: BLADDER DISORDER
     Dosage: UNK, UNKNOWN
     Route: 062
     Dates: start: 201302, end: 201311

REACTIONS (1)
  - Drug ineffective [Unknown]
